FAERS Safety Report 7549095-7 (Version None)
Quarter: 2011Q2

REPORT INFORMATION
  Report Type: 
  Country: None (occurrence: None)
  Receive Date: 20110615
  Receipt Date: 20110609
  Transmission Date: 20111010
  Serious: Yes (Hospitalization)
  Sender: FDA-Public Use
  Company Number: IT-PFIZER INC-2011116291

PATIENT
  Age: 9 Year
  Sex: Male

DRUGS (1)
  1. ZITHROMAX [Suspect]
     Indication: STREPTOCOCCAL INFECTION
     Dosage: 10 MG/KG, DAILY
     Route: 048
     Dates: start: 20110404

REACTIONS (5)
  - PYREXIA [None]
  - MYALGIA [None]
  - RHEUMATIC HEART DISEASE [None]
  - RASH [None]
  - PARVOVIRUS INFECTION [None]
